FAERS Safety Report 7319971-9 (Version None)
Quarter: 2011Q1

REPORT INFORMATION
  Report Type: 
  Country: None (occurrence: None)
  Receive Date: 20110228
  Receipt Date: 20110224
  Transmission Date: 20110831
  Serious: Yes (Death, Hospitalization, Other)
  Sender: FDA-Public Use
  Company Number: PHHY2011BR15277

PATIENT
  Sex: Female
  Weight: 63 kg

DRUGS (1)
  1. DIOVAN [Suspect]
     Indication: HYPERTENSION
     Dosage: NOT SPECIFIED
     Route: 048

REACTIONS (3)
  - BLOOD PRESSURE DECREASED [None]
  - SYNCOPE [None]
  - ARRHYTHMIA [None]
